FAERS Safety Report 10045904 (Version 1)
Quarter: 2014Q1

REPORT INFORMATION
  Report Type: Spontaneous
  Country: US (occurrence: US)
  Receive Date: 20140329
  Receipt Date: 20140329
  Transmission Date: 20141002
  Serious: No
  Sender: FDA-Public Use
  Company Number: US-009507513-1403USA007777

PATIENT
  Sex: 0

DRUGS (19)
  1. PRINIVIL [Suspect]
     Route: 048
  2. CYCLOBENZAPRINE HYDROCHLORIDE [Concomitant]
  3. CYMBALTA [Concomitant]
  4. MICARDIS [Concomitant]
  5. CHANTIX [Concomitant]
  6. LYRICA [Concomitant]
     Indication: NEUROPATHY PERIPHERAL
     Dosage: 50 MG, TID
     Route: 048
     Dates: start: 20131024
  7. LYRICA [Concomitant]
     Indication: FIBROMYALGIA
  8. TOPAMAX [Concomitant]
     Indication: CONVULSION
     Dosage: 100 MG, BID
     Route: 048
     Dates: start: 20110921
  9. LANTUS [Concomitant]
     Indication: DIABETES MELLITUS
     Dosage: 100 UNIT/ML, 30 UNITS 1 PER DAY
     Route: 058
     Dates: start: 20100722
  10. NOVOLOG [Concomitant]
     Indication: DIABETES MELLITUS
     Dosage: FLEXPEN 100 UNIT/ML, AS PER INSULIN SLIDING SCALE PROTOCOL 3 TIMES PER DAY WITH MEALS
     Route: 058
     Dates: start: 20101103
  11. EFFEXOR XR [Concomitant]
     Indication: DEPRESSION
     Dosage: 150 MG, QD
     Dates: start: 20120216
  12. PROVIGIL [Concomitant]
     Indication: NARCOLEPSY
     Dosage: 200 MG, QAM
     Route: 048
     Dates: start: 20100710
  13. LEVOTHYROXINE SODIUM [Concomitant]
     Indication: HYPOTHYROIDISM
     Dosage: 150 MICROGRAM, QD
  14. LEVOTHYROXINE SODIUM [Concomitant]
     Dosage: 150 MICROGRAM, QD
     Dates: start: 20131106
  15. METHOCARBAMOL [Concomitant]
     Dosage: 2 TABLETS 3 TIMES A DAY
     Route: 048
  16. ASPIRIN [Concomitant]
     Dosage: LOW DOSE
     Route: 048
     Dates: start: 20131106
  17. HYDROCHLOROTHIAZIDE [Concomitant]
     Dosage: 25 MG, QD
     Route: 048
     Dates: start: 20131021
  18. BENICAR [Concomitant]
     Dosage: 40 MG, QD
     Route: 048
     Dates: start: 20130916
  19. SLO-NIACIN [Concomitant]
     Dosage: 500 MG, 1 TABLET AT BEDTIME PER DAY
     Route: 048
     Dates: start: 20130529

REACTIONS (4)
  - Cough [Unknown]
  - Syncope [Unknown]
  - Stomatitis [Unknown]
  - Diarrhoea [Unknown]
